FAERS Safety Report 14382994 (Version 1)
Quarter: 2018Q1

REPORT INFORMATION
  Report Type: Report from Study
  Country: GB (occurrence: GB)
  Receive Date: 20180114
  Receipt Date: 20180114
  Transmission Date: 20180509
  Serious: Yes (Other)
  Sender: FDA-Public Use
  Company Number: PHHY2018GB001364

PATIENT
  Sex: Female

DRUGS (1)
  1. OMNITROPE [Suspect]
     Active Substance: SOMATROPIN
     Indication: TURNER^S SYNDROME
     Dosage: 1.3 MG, QD
     Route: 065
     Dates: start: 201711

REACTIONS (7)
  - Rash [Not Recovered/Not Resolved]
  - Feeling abnormal [Unknown]
  - Eye swelling [Not Recovered/Not Resolved]
  - Nasopharyngitis [Unknown]
  - Ocular hyperaemia [Unknown]
  - Headache [Unknown]
  - Pallor [Unknown]
